FAERS Safety Report 7999420-8 (Version None)
Quarter: 2011Q4

REPORT INFORMATION
  Report Type: 
  Country: None (occurrence: None)
  Receive Date: 20111221
  Receipt Date: 20111212
  Transmission Date: 20120403
  Serious: Yes (Hospitalization)
  Sender: FDA-Public Use
  Company Number: US-ELI_LILLY_AND_COMPANY-US201112003678

PATIENT
  Sex: Female

DRUGS (9)
  1. LISINOPRIL [Concomitant]
     Indication: BLOOD PRESSURE
     Dosage: UNK
  2. HUMULIN 70/30 [Suspect]
     Indication: DIABETES MELLITUS
     Dosage: 20 U, BID
     Dates: start: 20010101
  3. ATENOLOL [Concomitant]
     Dosage: UNK
  4. HUMULIN 70/30 [Suspect]
     Dosage: 4 U, UNK
  5. HUMULIN 70/30 [Suspect]
     Dosage: 20 U, BID
     Dates: start: 20110101
  6. GLUCOPHAGE [Concomitant]
     Dosage: UNK
  7. GLIPIZIDE [Concomitant]
     Dosage: UNK
  8. SIMVASTATIN [Concomitant]
     Dosage: UNK
  9. INVEGA [Concomitant]
     Dosage: UNK

REACTIONS (11)
  - BALANCE DISORDER [None]
  - HEADACHE [None]
  - DEPRESSION [None]
  - FEELING ABNORMAL [None]
  - ANXIETY [None]
  - SOMNOLENCE [None]
  - IRRITABILITY [None]
  - DIZZINESS [None]
  - NERVOUSNESS [None]
  - MUSCLE SPASMS [None]
  - BLOOD GLUCOSE INCREASED [None]
